FAERS Safety Report 9671312 (Version 2)
Quarter: 2013Q4

REPORT INFORMATION
  Report Type: Spontaneous
  Country: SI (occurrence: SI)
  Receive Date: 20131106
  Receipt Date: 20131226
  Transmission Date: 20140711
  Serious: Yes (Life-Threatening, Hospitalization, Other)
  Sender: FDA-Public Use
  Company Number: PHHY2013SI122627

PATIENT
  Age: 52 Year
  Sex: Female

DRUGS (5)
  1. BUPROPION [Suspect]
     Indication: MAJOR DEPRESSION
     Dosage: 300 MG, DAILY
  2. DULOXETINE [Interacting]
     Dosage: 30 MG, DAILY
  3. DULOXETINE [Interacting]
     Dosage: 90 MG, DAILY
  4. DULOXETINE [Interacting]
     Dosage: 30 MG, DAILY
  5. ZOLPIDEM [Concomitant]
     Dosage: 5 MG, DAILY

REACTIONS (5)
  - Long QT syndrome [Recovered/Resolved]
  - Sinus arrhythmia [Recovered/Resolved]
  - Palpitations [Recovered/Resolved]
  - Loss of consciousness [Recovered/Resolved]
  - Drug interaction [Unknown]
